FAERS Safety Report 6148162-2 (Version None)
Quarter: 2009Q2

REPORT INFORMATION
  Report Type: 
  Country: None (occurrence: None)
  Receive Date: 20090408
  Receipt Date: 20090327
  Transmission Date: 20091009
  Serious: Yes (Other)
  Sender: FDA-Public Use
  Company Number: US-PFIZER INC-2008033759

PATIENT
  Sex: Female
  Weight: 45.4 kg

DRUGS (8)
  1. DILANTIN [Suspect]
     Indication: GRAND MAL CONVULSION
     Dates: start: 19900701
  2. LEVOTHROID [Suspect]
     Indication: THYROID DISORDER
     Dosage: 150 UG, 1X/DAY
  3. OTHER RESPIRATORY SYSTEM PRODUCTS [Concomitant]
  4. EPIPEN [Concomitant]
     Dosage: UNK
  5. MULTI-VITAMINS [Concomitant]
     Dosage: UNK
  6. CALCIUM [Concomitant]
     Dosage: UNK
  7. COD-LIVER OIL [Concomitant]
     Dosage: UNK
  8. ASCORBIC ACID [Concomitant]
     Dosage: UNK

REACTIONS (8)
  - ABASIA [None]
  - CONVULSION [None]
  - DIZZINESS [None]
  - FATIGUE [None]
  - MEMORY IMPAIRMENT [None]
  - NYSTAGMUS [None]
  - SEDATION [None]
  - URTICARIA [None]
